FAERS Safety Report 7392658-2 (Version None)
Quarter: 2011Q1

REPORT INFORMATION
  Report Type: 
  Country: None (occurrence: None)
  Receive Date: 20110330
  Receipt Date: 20110330
  Transmission Date: 20110831
  Serious: Yes (Other)
  Sender: FDA-Public Use
  Company Number: None

PATIENT
  Age: 52 Year
  Sex: Female

DRUGS (10)
  1. LEVOTHYROXINE [Concomitant]
  2. LITHIUM [Concomitant]
  3. COPAXONE [Suspect]
     Indication: MULTIPLE SCLEROSIS
     Dosage: 20 MG QD SQ
     Route: 058
     Dates: start: 20100901, end: 20110316
  4. BACLOFEN [Concomitant]
  5. OXYCONTIN [Concomitant]
  6. MAXZIDE [Concomitant]
  7. CLARITIN [Concomitant]
  8. DEXAMETHASONE [Concomitant]
  9. NEURONTIN [Concomitant]
  10. ESTROSTEP [Concomitant]

REACTIONS (9)
  - MUSCLE TIGHTNESS [None]
  - ABASIA [None]
  - MUSCLE CONTRACTIONS INVOLUNTARY [None]
  - CHILLS [None]
  - SKIN DISCOLOURATION [None]
  - HYPERSENSITIVITY [None]
  - PALLOR [None]
  - FLUSHING [None]
  - BURNING SENSATION [None]
